FAERS Safety Report 25588973 (Version 1)
Quarter: 2025Q3

REPORT INFORMATION
  Report Type: Spontaneous
  Country: US (occurrence: US)
  Receive Date: 20250722
  Receipt Date: 20250722
  Transmission Date: 20251020
  Serious: Yes (Hospitalization, Other)
  Sender: AMGEN
  Company Number: US-AMGEN-USASP2025139076

PATIENT
  Age: 56 Year
  Sex: Female

DRUGS (1)
  1. RITUXIMAB [Suspect]
     Active Substance: RITUXIMAB
     Indication: Glomerulonephritis membranous
     Route: 065

REACTIONS (6)
  - Labile blood pressure [Unknown]
  - Chronic kidney disease [Unknown]
  - Respiratory failure [Unknown]
  - Acute kidney injury [Unknown]
  - West Nile viral infection [Unknown]
  - Off label use [Unknown]
